FAERS Safety Report 15208298 (Version 2)
Quarter: 2018Q3

REPORT INFORMATION
  Report Type: Spontaneous
  Country: US (occurrence: US)
  Receive Date: 20180727
  Receipt Date: 20180801
  Transmission Date: 20181010
  Serious: Yes (Other)
  Sender: FDA-Public Use
  Company Number: US-PFIZER INC-2018297595

PATIENT
  Age: 4 Week
  Sex: Male

DRUGS (4)
  1. CYTARABINE. [Suspect]
     Active Substance: CYTARABINE
     Indication: XANTHOGRANULOMA
     Dosage: UNK, CYCLIC (SEVERAL CYCLES)
  2. ETOPOSIDE. [Suspect]
     Active Substance: ETOPOSIDE
     Indication: XANTHOGRANULOMA
     Dosage: UNK, CYCLIC (SEVERAL CYCLES)
  3. URSODIOL. [Concomitant]
     Active Substance: URSODIOL
     Indication: HEPATIC FAILURE
     Dosage: UNK
  4. LACTULOSE. [Concomitant]
     Active Substance: LACTULOSE
     Indication: HEPATIC FAILURE
     Dosage: UNK

REACTIONS (1)
  - Venoocclusive disease [Unknown]
